FAERS Safety Report 4587585-X (Version None)
Quarter: 2005Q1

REPORT INFORMATION
  Report Type: 
  Country: None (occurrence: None)
  Receive Date: 20050125
  Receipt Date: 20040913
  Transmission Date: 20050727
  Serious: No
  Sender: FDA-Public Use
  Company Number: USA040978171

PATIENT
  Sex: Female

DRUGS (2)
  1. FORTEO [Suspect]
     Indication: OSTEOPOROSIS
     Dates: start: 20040906
  2. REMICADE [Concomitant]

REACTIONS (3)
  - JOINT RANGE OF MOTION DECREASED [None]
  - PAIN [None]
  - PAIN IN EXTREMITY [None]
